FAERS Safety Report 8401415-7 (Version None)
Quarter: 2012Q2

REPORT INFORMATION
  Report Type: 
  Country: None (occurrence: None)
  Receive Date: 20120601
  Receipt Date: 20120529
  Transmission Date: 20120825
  Serious: Yes (Other)
  Sender: FDA-Public Use
  Company Number: PHEH2012US009825

PATIENT
  Sex: Female
  Weight: 53.968 kg

DRUGS (8)
  1. EVISTA [Concomitant]
     Dosage: 60 MG, UNK
     Route: 048
     Dates: start: 20060101
  2. DYAZIDE [Concomitant]
     Dosage: 1 DF (37.5/25 MG), QD
     Route: 048
     Dates: start: 20070101
  3. RECLAST [Suspect]
     Indication: OSTEOPOROSIS
     Dosage: 5 MG, EVERY 12 MONTHS
     Route: 042
     Dates: start: 20120507
  4. OMEPRAZOLE [Concomitant]
     Dosage: 20 MG, QD
     Route: 048
     Dates: start: 20080101
  5. PRAVASTATIN [Concomitant]
     Dosage: 40 MG, UNK
     Route: 048
  6. ACTOS [Concomitant]
     Dosage: 15 MEQ, QD
     Route: 048
     Dates: start: 20110101
  7. LOSARTAN POTASSIUM [Concomitant]
     Dosage: 100 MG, QD
     Route: 048
     Dates: start: 20100101
  8. JANUVIA [Concomitant]
     Dosage: 100 MG, QD
     Route: 048
     Dates: start: 20100101

REACTIONS (10)
  - VOMITING [None]
  - EYE IRRITATION [None]
  - MYALGIA [None]
  - KERATITIS HERPETIC [None]
  - MALAISE [None]
  - FATIGUE [None]
  - BACK PAIN [None]
  - EYE PAIN [None]
  - DECREASED APPETITE [None]
  - PARAESTHESIA [None]
